FAERS Safety Report 18439131 (Version 7)
Quarter: 2021Q1

REPORT INFORMATION
  Report Type: Report from Study
  Country: BR (occurrence: BR)
  Receive Date: 20201028
  Receipt Date: 20210217
  Transmission Date: 20210419
  Serious: Yes (Death, Life-Threatening, Hospitalization, Other)
  Sender: FDA-Public Use
  Company Number: BR-GILEAD-2020-0490082

PATIENT
  Age: 55 Year
  Sex: Male
  Weight: 83 kg

DRUGS (160)
  1. TOCILIZUMAB. [Suspect]
     Active Substance: TOCILIZUMAB
     Indication: COVID-19 PNEUMONIA
     Dosage: 00 ML) PRIOR TO ONSET OF
     Route: 042
     Dates: start: 20200722, end: 20200722
  2. TOCILIZUMAB. [Suspect]
     Active Substance: TOCILIZUMAB
     Dosage: UNK
     Route: 042
  3. PRECEDEX [Concomitant]
     Active Substance: DEXMEDETOMIDINE HYDROCHLORIDE
     Indication: ANXIETY
     Dosage: 100 UG
     Dates: start: 20200805, end: 20200809
  4. ENOXAPARIN [Concomitant]
     Active Substance: ENOXAPARIN
     Dosage: 40 MG
     Dates: start: 20200829, end: 20200831
  5. MORPHINE [Concomitant]
     Active Substance: MORPHINE
     Indication: COVID-19
     Dosage: 1 MG
     Dates: start: 20200816, end: 20200816
  6. OXYGEN. [Concomitant]
     Active Substance: OXYGEN
     Dosage: TRANSTRACHEAL
     Dates: start: 20200830
  7. OXYGEN. [Concomitant]
     Active Substance: OXYGEN
     Dosage: 30 %
     Route: 007
     Dates: start: 20200817
  8. OXYGEN. [Concomitant]
     Active Substance: OXYGEN
     Dosage: TRANSTRACHEAL
     Dates: start: 20200909
  9. OXYGEN. [Concomitant]
     Active Substance: OXYGEN
     Dosage: 9 L/MIN
     Route: 055
     Dates: start: 20200722
  10. OXYGEN. [Concomitant]
     Active Substance: OXYGEN
     Dosage: 30 %
     Route: 007
     Dates: start: 20200816
  11. OXYGEN. [Concomitant]
     Active Substance: OXYGEN
     Dosage: TRANSTRACHEAL
     Dates: start: 20200907
  12. OXYGEN. [Concomitant]
     Active Substance: OXYGEN
     Dosage: 40 %
     Route: 007
     Dates: start: 20200802
  13. OXYGEN. [Concomitant]
     Active Substance: OXYGEN
     Dosage: 45 %
     Route: 007
     Dates: start: 20200803
  14. OXYGEN. [Concomitant]
     Active Substance: OXYGEN
     Dosage: 15 L/MIN
     Route: 055
     Dates: start: 20200726
  15. OXYGEN. [Concomitant]
     Active Substance: OXYGEN
     Dosage: 35 %
     Route: 007
     Dates: start: 20200820
  16. OXYGEN. [Concomitant]
     Active Substance: OXYGEN
     Dosage: TRANSTRACHEAL
     Dates: start: 20200901
  17. OXYGEN. [Concomitant]
     Active Substance: OXYGEN
     Dosage: TRANSTRACHEAL
     Dates: start: 20200905
  18. OXYGEN. [Concomitant]
     Active Substance: OXYGEN
     Dosage: 40 %
     Route: 007
     Dates: start: 20200728
  19. OXYGEN. [Concomitant]
     Active Substance: OXYGEN
     Dosage: 11 L/MIN
     Route: 055
     Dates: start: 20200722
  20. ROCURONIUM [Concomitant]
     Active Substance: ROCURONIUM BROMIDE
  21. GLUCOSE [Concomitant]
     Active Substance: DEXTROSE
     Dates: start: 20200821, end: 20200821
  22. ENOXAPARIN [Concomitant]
     Active Substance: ENOXAPARIN
     Dosage: 40 MG
     Dates: start: 20200901, end: 20200915
  23. ENOXAPARIN [Concomitant]
     Active Substance: ENOXAPARIN
     Dosage: 80 MG
     Dates: start: 20200826, end: 20200827
  24. OXYGEN. [Concomitant]
     Active Substance: OXYGEN
     Dosage: 40 %
     Route: 007
     Dates: start: 20200823
  25. OXYGEN. [Concomitant]
     Active Substance: OXYGEN
     Dosage: 15 L/MIN
     Route: 055
     Dates: start: 20200725
  26. OXYGEN. [Concomitant]
     Active Substance: OXYGEN
     Dosage: 12 L/MIN
     Route: 055
     Dates: start: 20200724
  27. OXYGEN. [Concomitant]
     Active Substance: OXYGEN
     Dosage: TRANSTRACHEAL
     Dates: start: 20200908
  28. OXYGEN. [Concomitant]
     Active Substance: OXYGEN
     Dosage: TRANSTRACHEAL
     Dates: start: 20200831
  29. OXYGEN. [Concomitant]
     Active Substance: OXYGEN
     Dosage: 5 L/MIN
     Route: 055
     Dates: start: 20200807
  30. OXYGEN. [Concomitant]
     Active Substance: OXYGEN
     Dosage: 30 %
     Route: 007
     Dates: start: 20200814
  31. OXYGEN. [Concomitant]
     Active Substance: OXYGEN
     Dosage: TRANSTRACHEAL
     Dates: start: 20200826
  32. OXYGEN. [Concomitant]
     Active Substance: OXYGEN
     Dosage: TRANSTRACHEAL
     Dates: start: 20200908
  33. OXYGEN. [Concomitant]
     Active Substance: OXYGEN
     Dosage: 30 %
     Route: 007
     Dates: start: 20200816
  34. OXYGEN. [Concomitant]
     Active Substance: OXYGEN
     Dosage: TRANSTRACHEAL
     Dates: start: 20200914
  35. OXYGEN. [Concomitant]
     Active Substance: OXYGEN
     Dosage: 50 %
     Route: 007
     Dates: start: 20200810
  36. OXYGEN. [Concomitant]
     Active Substance: OXYGEN
     Dosage: 50 %
     Route: 007
     Dates: start: 20200730
  37. OXYGEN. [Concomitant]
     Active Substance: OXYGEN
     Dosage: TRANSTRACHEAL
     Dates: start: 20200903
  38. OXYGEN. [Concomitant]
     Active Substance: OXYGEN
     Dosage: TRANSTRACHEAL
     Dates: start: 20200830
  39. OSELTAMIVIR [Concomitant]
     Active Substance: OSELTAMIVIR
     Dosage: 75 MG
     Dates: start: 20200723, end: 20200723
  40. ZOLPIDEM [Concomitant]
     Active Substance: ZOLPIDEM TARTRATE
     Indication: INSOMNIA
     Dosage: 5 MG
     Dates: start: 20200723, end: 20200725
  41. AMIKACIN. [Concomitant]
     Active Substance: AMIKACIN
  42. NORADRENALINE [NOREPINEPHRINE] [Concomitant]
     Active Substance: NOREPINEPHRINE
     Indication: PNEUMONIA KLEBSIELLA
     Dosage: 20 ML
     Dates: start: 20200903, end: 20200913
  43. REMDESIVIR. [Suspect]
     Active Substance: REMDESIVIR
     Dosage: QD
     Route: 042
     Dates: start: 20200723, end: 20200731
  44. METOCLOPRAMIDE. [Concomitant]
     Active Substance: METOCLOPRAMIDE
     Dosage: 5 MG
     Dates: start: 20200719, end: 20200826
  45. METOCLOPRAMIDE. [Concomitant]
     Active Substance: METOCLOPRAMIDE
     Dosage: 5 MG
     Dates: start: 20200905, end: 20200915
  46. MORPHINE [Concomitant]
     Active Substance: MORPHINE
     Dosage: 1 MG
     Dates: start: 20200828, end: 20200828
  47. FUROSEMIDE. [Concomitant]
     Active Substance: FUROSEMIDE
     Dosage: 20 MG
     Dates: start: 20200722, end: 20200722
  48. OXYGEN. [Concomitant]
     Active Substance: OXYGEN
     Dosage: 35 %
     Route: 007
     Dates: start: 20200819
  49. OXYGEN. [Concomitant]
     Active Substance: OXYGEN
     Dosage: 40 %
     Route: 007
     Dates: start: 20200801
  50. OXYGEN. [Concomitant]
     Active Substance: OXYGEN
     Dosage: TRANSTRACHEAL
     Dates: start: 20200906
  51. OXYGEN. [Concomitant]
     Active Substance: OXYGEN
     Dosage: TRANSTRACHEAL
     Dates: start: 20200828
  52. OXYGEN. [Concomitant]
     Active Substance: OXYGEN
     Dosage: TRANSTRACHEAL
     Dates: start: 20200902
  53. OXYGEN. [Concomitant]
     Active Substance: OXYGEN
     Dosage: 11 L/MIN
     Route: 055
     Dates: start: 20200722
  54. OXYGEN. [Concomitant]
     Active Substance: OXYGEN
     Dosage: 50 %
     Route: 007
     Dates: start: 20200731
  55. OXYGEN. [Concomitant]
     Active Substance: OXYGEN
     Dosage: TRANSTRACHEAL
     Dates: start: 20200904
  56. OXYGEN. [Concomitant]
     Active Substance: OXYGEN
     Dosage: TRANSTRACHEAL
     Dates: start: 20200829
  57. OXYGEN. [Concomitant]
     Active Substance: OXYGEN
     Dosage: TRANSTRACHEAL
     Dates: start: 20200822
  58. OXYGEN. [Concomitant]
     Active Substance: OXYGEN
     Dosage: 11 L/MIN
     Route: 055
     Dates: start: 20200722
  59. OXYGEN. [Concomitant]
     Active Substance: OXYGEN
     Dosage: TRANSTRACHEAL
     Dates: start: 20200827
  60. OXYGEN. [Concomitant]
     Active Substance: OXYGEN
     Dosage: 60 %
     Route: 007
     Dates: start: 20200809
  61. OXYGEN. [Concomitant]
     Active Substance: OXYGEN
     Dosage: TRANSTRACHEAL
     Dates: start: 20200913
  62. OXYGEN. [Concomitant]
     Active Substance: OXYGEN
     Dosage: 08 L/MIN
     Route: 055
     Dates: start: 20200723
  63. OXYGEN. [Concomitant]
     Active Substance: OXYGEN
     Dosage: TRANSTRACHEAL
     Dates: start: 20200825
  64. CEFTRIAXONE. [Concomitant]
     Active Substance: CEFTRIAXONE
     Dosage: 2 G
     Dates: start: 20200720, end: 20200725
  65. REMDESIVIR. [Suspect]
     Active Substance: REMDESIVIR
     Indication: COVID-19 PNEUMONIA
     Dosage: ONCE
     Route: 042
     Dates: start: 20200722, end: 20200722
  66. ENOXAPARIN [Concomitant]
     Active Substance: ENOXAPARIN
     Dosage: 40 MG
     Dates: start: 20200722, end: 20200724
  67. FUROSEMIDE. [Concomitant]
     Active Substance: FUROSEMIDE
     Indication: COVID-19
     Dosage: 20 MG
     Dates: start: 20200816, end: 20200819
  68. OXYGEN. [Concomitant]
     Active Substance: OXYGEN
     Dosage: 35 %
     Route: 007
     Dates: start: 20200821
  69. OXYGEN. [Concomitant]
     Active Substance: OXYGEN
     Dosage: 30 %
     Route: 007
     Dates: start: 20200804
  70. OXYGEN. [Concomitant]
     Active Substance: OXYGEN
     Dosage: 70 %
     Route: 007
     Dates: start: 20200727
  71. OXYGEN. [Concomitant]
     Active Substance: OXYGEN
     Dosage: TRANSTRACHEAL
     Dates: start: 20200903
  72. OXYGEN. [Concomitant]
     Active Substance: OXYGEN
     Dosage: 30 %
     Route: 007
     Dates: start: 20200820
  73. OXYGEN. [Concomitant]
     Active Substance: OXYGEN
     Dosage: TRANSTRACHEAL
     Dates: start: 20200911
  74. OXYGEN. [Concomitant]
     Active Substance: OXYGEN
     Dosage: TRANSTRACHEAL
     Dates: start: 20200912
  75. OXYGEN. [Concomitant]
     Active Substance: OXYGEN
     Dosage: 40 %
     Route: 007
     Dates: start: 20200801
  76. OXYGEN. [Concomitant]
     Active Substance: OXYGEN
     Dosage: 35 %
     Route: 007
     Dates: start: 20200812
  77. OXYGEN. [Concomitant]
     Active Substance: OXYGEN
     Dosage: 40 %
     Route: 007
     Dates: start: 20200731
  78. OXYGEN. [Concomitant]
     Active Substance: OXYGEN
     Dosage: 5 L/MIN
     Route: 055
     Dates: start: 20200807
  79. OXYGEN. [Concomitant]
     Active Substance: OXYGEN
     Dosage: TRANSTRACHEAL
     Dates: start: 20200910
  80. OXYGEN. [Concomitant]
     Active Substance: OXYGEN
     Dosage: 5 L/MIN
     Route: 055
     Dates: start: 20200806
  81. OXYGEN. [Concomitant]
     Active Substance: OXYGEN
     Dosage: 7 L/MIN
     Route: 055
     Dates: start: 20200808
  82. DEXAMETHASONE. [Concomitant]
     Active Substance: DEXAMETHASONE
     Indication: COVID-19
     Dosage: 6 MG
     Dates: start: 20200719, end: 20200726
  83. LINEZOLID. [Concomitant]
     Active Substance: LINEZOLID
  84. FENTANYL. [Concomitant]
     Active Substance: FENTANYL
  85. DORMONID [MIDAZOLAM] [Concomitant]
  86. NORADRENALINE [NOREPINEPHRINE] [Concomitant]
     Active Substance: NOREPINEPHRINE
     Dosage: 20 ML
     Dates: start: 20200726, end: 20200803
  87. PRECEDEX [Concomitant]
     Active Substance: DEXMEDETOMIDINE HYDROCHLORIDE
     Dosage: 100 UG
     Dates: start: 20200824, end: 20200905
  88. FUROSEMIDE. [Concomitant]
     Active Substance: FUROSEMIDE
     Dosage: 20 MG
     Dates: start: 20200804, end: 20200804
  89. OXYGEN. [Concomitant]
     Active Substance: OXYGEN
     Dosage: TRANSTRACHEAL
     Dates: start: 20200827
  90. OXYGEN. [Concomitant]
     Active Substance: OXYGEN
     Dosage: 45 %
     Route: 007
     Dates: start: 20200729
  91. OXYGEN. [Concomitant]
     Active Substance: OXYGEN
     Dosage: 40 %
     Route: 007
     Dates: start: 20200728
  92. OXYGEN. [Concomitant]
     Active Substance: OXYGEN
     Dosage: 40 %
     Route: 007
     Dates: start: 20200824
  93. OXYGEN. [Concomitant]
     Active Substance: OXYGEN
     Dosage: TRANSTRACHEAL
     Dates: start: 20200829
  94. OXYGEN. [Concomitant]
     Active Substance: OXYGEN
     Dosage: 5 L/MIN
     Route: 055
     Dates: start: 20200808
  95. OXYGEN. [Concomitant]
     Active Substance: OXYGEN
     Dosage: 10 L/MIN
     Route: 055
     Dates: start: 20200723
  96. OXYGEN. [Concomitant]
     Active Substance: OXYGEN
     Dosage: 40 %
     Route: 007
     Dates: start: 20200812
  97. OXYGEN. [Concomitant]
     Active Substance: OXYGEN
     Dosage: 35 %
     Route: 007
     Dates: start: 20200818
  98. OXYGEN. [Concomitant]
     Active Substance: OXYGEN
     Dosage: TRANSTRACHEAL
     Dates: start: 20200912
  99. OXYGEN. [Concomitant]
     Active Substance: OXYGEN
     Dosage: 30 %
     Route: 007
     Dates: start: 20200815
  100. OXYGEN. [Concomitant]
     Active Substance: OXYGEN
     Dosage: TRANSTRACHEAL
     Dates: start: 20200828
  101. OXYGEN. [Concomitant]
     Active Substance: OXYGEN
     Dosage: TRANSTRACHEAL
     Dates: start: 20200909
  102. OXYGEN. [Concomitant]
     Active Substance: OXYGEN
     Dosage: 40 %
     Route: 007
     Dates: start: 20200802
  103. OXYGEN. [Concomitant]
     Active Substance: OXYGEN
     Dosage: 40 %
     Route: 007
     Dates: start: 20200805
  104. OXYGEN. [Concomitant]
     Active Substance: OXYGEN
     Dosage: 40 %
     Route: 007
     Dates: start: 20200811
  105. OXYGEN. [Concomitant]
     Active Substance: OXYGEN
     Dosage: 35 %
     Route: 007
     Dates: start: 20200818
  106. OXYGEN. [Concomitant]
     Active Substance: OXYGEN
     Dosage: 45 %
     Route: 007
     Dates: start: 20200803
  107. POLARIZING SOLUTION (INSULIN+GLUCOSE SOLUTION) [Concomitant]
  108. OMEPRAZOLE. [Concomitant]
     Active Substance: OMEPRAZOLE
     Dosage: 40 MG
     Dates: start: 20200720, end: 20200915
  109. PRECEDEX [Concomitant]
     Active Substance: DEXMEDETOMIDINE HYDROCHLORIDE
     Dosage: 100 UG
     Dates: start: 20200814, end: 20200818
  110. FUROSEMIDE. [Concomitant]
     Active Substance: FUROSEMIDE
     Dosage: 20 MG
     Dates: start: 20200729, end: 20200729
  111. OXYGEN. [Concomitant]
     Active Substance: OXYGEN
     Dosage: 40 %
     Route: 007
     Dates: start: 20200810
  112. OXYGEN. [Concomitant]
     Active Substance: OXYGEN
     Dosage: TRANSTRACHEAL
     Dates: start: 20200915
  113. OXYGEN. [Concomitant]
     Active Substance: OXYGEN
     Dosage: 40 %
     Route: 007
     Dates: start: 20200813
  114. OXYGEN. [Concomitant]
     Active Substance: OXYGEN
     Dosage: TRANSTRACHEAL
     Dates: start: 20200913
  115. OXYGEN. [Concomitant]
     Active Substance: OXYGEN
     Dosage: 50 %
     Route: 007
     Dates: start: 20200730
  116. OXYGEN. [Concomitant]
     Active Substance: OXYGEN
     Dosage: 50 %
     Route: 007
     Dates: start: 20200811
  117. OXYGEN. [Concomitant]
     Active Substance: OXYGEN
     Dosage: TRANSTRACHEAL
     Dates: start: 20200911
  118. OXYGEN. [Concomitant]
     Active Substance: OXYGEN
     Dosage: 15 L/MIN
     Route: 055
     Dates: start: 20200725
  119. OXYGEN. [Concomitant]
     Active Substance: OXYGEN
     Dosage: TRANSTRACHEAL
     Dates: start: 20200831
  120. OXYGEN. [Concomitant]
     Active Substance: OXYGEN
     Dosage: TRANSTRACHEAL
     Dates: start: 20200906
  121. OXYGEN. [Concomitant]
     Active Substance: OXYGEN
     Dosage: 40 %
     Route: 007
     Dates: start: 20200823
  122. OXYGEN. [Concomitant]
     Active Substance: OXYGEN
     Dosage: 30 %
     Route: 007
     Dates: start: 20200819
  123. OXYGEN. [Concomitant]
     Active Substance: OXYGEN
     Dosage: 50 %
     Route: 007
     Dates: start: 20200727
  124. OXYGEN. [Concomitant]
     Active Substance: OXYGEN
     Dosage: 65 %
     Route: 007
     Dates: start: 20200729
  125. OXYGEN. [Concomitant]
     Active Substance: OXYGEN
     Dosage: TRANSTRACHEAL
     Dates: start: 20200902
  126. OSELTAMIVIR [Concomitant]
     Active Substance: OSELTAMIVIR
     Indication: COVID-19
     Dosage: 75 MG
     Dates: start: 20200720, end: 20200720
  127. NORADRENALINE [NOREPINEPHRINE] [Concomitant]
     Active Substance: NOREPINEPHRINE
     Indication: ACUTE KIDNEY INJURY
     Dosage: 20 ML
     Dates: start: 20200809, end: 20200827
  128. ENOXAPARIN [Concomitant]
     Active Substance: ENOXAPARIN
     Dosage: 40 MG
     Dates: start: 20200719, end: 20200719
  129. DIPYRONE [Concomitant]
     Active Substance: DIPYRONE
     Indication: COVID-19
     Dosage: 1000 MG
     Dates: start: 20200816, end: 20200909
  130. DIPYRONE [Concomitant]
     Active Substance: DIPYRONE
     Dosage: 500 MG
     Dates: start: 20200722, end: 20200802
  131. MORPHINE [Concomitant]
     Active Substance: MORPHINE
     Dosage: 1 MG
     Dates: start: 20200904, end: 20200904
  132. NORADRENALINE (NORPINEPHRINE) [Concomitant]
     Active Substance: NOREPINEPHRINE
  133. OXYGEN. [Concomitant]
     Active Substance: OXYGEN
     Dosage: 30 %
     Route: 007
     Dates: start: 20200814
  134. OXYGEN. [Concomitant]
     Active Substance: OXYGEN
     Dosage: 7 L/MIN
     Route: 055
     Dates: start: 20200809
  135. OXYGEN. [Concomitant]
     Active Substance: OXYGEN
     Dosage: TRANSTRACHEAL
     Dates: start: 20200905
  136. OXYGEN. [Concomitant]
     Active Substance: OXYGEN
     Dosage: 35 %
     Route: 007
     Dates: start: 20200817
  137. OXYGEN. [Concomitant]
     Active Substance: OXYGEN
     Dosage: TRANSTRACHEAL
     Dates: start: 20200907
  138. OXYGEN. [Concomitant]
     Active Substance: OXYGEN
     Dosage: 100 %
     Route: 007
     Dates: start: 20200726
  139. OXYGEN. [Concomitant]
     Active Substance: OXYGEN
     Dosage: 12 L/MIN
     Route: 055
     Dates: start: 20200724
  140. OXYGEN. [Concomitant]
     Active Substance: OXYGEN
     Dosage: 30 %
     Route: 007
     Dates: start: 20200813
  141. AZITHROMYCIN ANHYDROUS. [Concomitant]
     Active Substance: AZITHROMYCIN ANHYDROUS
     Dosage: 500 MG
     Dates: start: 20200720, end: 20200723
  142. ANIDULAFUNGIN [Concomitant]
     Active Substance: ANIDULAFUNGIN
  143. GLUCOSE [Concomitant]
     Active Substance: DEXTROSE
     Indication: HYPOGLYCAEMIA
     Dates: start: 20200808, end: 20200808
  144. PRECEDEX [Concomitant]
     Active Substance: DEXMEDETOMIDINE HYDROCHLORIDE
     Dosage: 100 UG
     Dates: start: 20200721, end: 20200726
  145. ENOXAPARIN [Concomitant]
     Active Substance: ENOXAPARIN
     Dosage: 80 MG
     Dates: start: 20200725, end: 20200811
  146. OXYGEN. [Concomitant]
     Active Substance: OXYGEN
     Dosage: 25 %
     Route: 007
     Dates: start: 20200830
  147. OXYGEN. [Concomitant]
     Active Substance: OXYGEN
     Dosage: TRANSTRACHEAL
     Dates: start: 20200914
  148. OXYGEN. [Concomitant]
     Active Substance: OXYGEN
     Dosage: TRANSTRACHEAL
     Dates: start: 20200901
  149. OXYGEN. [Concomitant]
     Active Substance: OXYGEN
     Dosage: TRANSTRACHEAL
     Dates: start: 20200822
  150. OXYGEN. [Concomitant]
     Active Substance: OXYGEN
     Dosage: TRANSTRACHEAL
     Dates: start: 20200910
  151. OXYGEN. [Concomitant]
     Active Substance: OXYGEN
     Dosage: 35 %
     Route: 007
     Dates: start: 20200805
  152. OXYGEN. [Concomitant]
     Active Substance: OXYGEN
     Dosage: 30 %
     Route: 007
     Dates: start: 20200825
  153. OXYGEN. [Concomitant]
     Active Substance: OXYGEN
     Dosage: 25 %
     Route: 007
     Dates: start: 20200826
  154. OXYGEN. [Concomitant]
     Active Substance: OXYGEN
     Dosage: 40 %
     Route: 007
     Dates: start: 20200806
  155. OXYGEN. [Concomitant]
     Active Substance: OXYGEN
     Dosage: 30 %
     Route: 007
     Dates: start: 20200824
  156. OXYGEN. [Concomitant]
     Active Substance: OXYGEN
     Dosage: TRANSTRACHEAL
     Dates: start: 20200904
  157. OXYGEN. [Concomitant]
     Active Substance: OXYGEN
     Dosage: 35 %
     Route: 007
     Dates: start: 20200804
  158. OXYGEN. [Concomitant]
     Active Substance: OXYGEN
     Dosage: TRANSTRACHEAL
     Dates: start: 20200821
  159. OXYGEN. [Concomitant]
     Active Substance: OXYGEN
     Dosage: 30 %
     Route: 007
     Dates: start: 20200815
  160. LEVOFLOXACIN. [Concomitant]
     Active Substance: LEVOFLOXACIN

REACTIONS (4)
  - Post procedural haemorrhage [Recovered/Resolved]
  - Atelectasis [Recovered/Resolved]
  - Pneumonia klebsiella [Fatal]
  - Sepsis [Recovered/Resolved]

NARRATIVE: CASE EVENT DATE: 20200808
